FAERS Safety Report 8368322-X (Version None)
Quarter: 2012Q2

REPORT INFORMATION
  Report Type: 
  Country: None (occurrence: None)
  Receive Date: 20120517
  Receipt Date: 20120503
  Transmission Date: 20120825
  Serious: Yes (Hospitalization, Other)
  Sender: FDA-Public Use
  Company Number: CHPA2012US010354

PATIENT
  Age: 59 Year
  Sex: Female

DRUGS (1)
  1. EXCEDRIN (MIGRAINE) [Suspect]
     Indication: MIGRAINE
     Dosage: 1-2 CAPLETS AS NEEDED
     Route: 048

REACTIONS (8)
  - VOMITING [None]
  - UNDERDOSE [None]
  - DIZZINESS [None]
  - DRUG INEFFECTIVE [None]
  - CHEST PAIN [None]
  - LABYRINTHITIS [None]
  - DEHYDRATION [None]
  - MIGRAINE [None]
